FAERS Safety Report 8738043 (Version 3)
Quarter: 2012Q4

REPORT INFORMATION
  Report Type: 
  Country: US (occurrence: US)
  Receive Date: 20120823
  Receipt Date: 20120914
  Transmission Date: 20130627
  Serious: Yes (Hospitalization)
  Sender: FDA-Public Use
  Company Number: US-BIOGENIDEC-2012BI032082

PATIENT
  Age: 26 Year
  Sex: Male

DRUGS (1)
  1. TYSABRI [Suspect]
     Indication: MULTIPLE SCLEROSIS
     Route: 042
     Dates: start: 20110223, end: 20120731

REACTIONS (6)
  - Abdominal pain [Recovered/Resolved]
  - Malaise [Recovered/Resolved]
  - Hepatitis viral [Recovered/Resolved]
  - Splenic infection viral [Recovered/Resolved]
  - Cytomegalovirus infection [Recovered/Resolved]
  - Atelectasis [Unknown]
